FAERS Safety Report 25606364 (Version 1)
Quarter: 2025Q3

REPORT INFORMATION
  Report Type: Spontaneous
  Country: US (occurrence: US)
  Receive Date: 20250725
  Receipt Date: 20250725
  Transmission Date: 20251021
  Serious: No
  Sender: RECORDATI
  Company Number: US-RECORDATI RARE DISEASE INC.-2025000519

PATIENT

DRUGS (2)
  1. SYLVANT [Suspect]
     Active Substance: SILTUXIMAB
     Indication: Product used for unknown indication
     Dates: end: 2022
  2. SYLVANT [Suspect]
     Active Substance: SILTUXIMAB
     Dates: start: 2023

REACTIONS (1)
  - Adverse reaction [Unknown]

NARRATIVE: CASE EVENT DATE: 20220101
